FAERS Safety Report 8306693-0 (Version None)
Quarter: 2012Q1

REPORT INFORMATION
  Report Type: 
  Country: None (occurrence: None)
  Receive Date: 20120327
  Receipt Date: 20100504
  Transmission Date: 20120608
  Serious: Yes (Hospitalization)
  Sender: FDA-Public Use
  Company Number: PHHY2010US28904

PATIENT
  Age: 63 Year
  Sex: Female

DRUGS (1)
  1. GLEEVEC [Suspect]
     Indication: LYMPHOPROLIFERATIVE DISORDER
     Dosage: 200 MG DAILY, ORAL
     Route: 048
     Dates: start: 20100313

REACTIONS (1)
  - DRUG INEFFECTIVE [None]
